FAERS Safety Report 15089936 (Version 2)
Quarter: 2018Q3

REPORT INFORMATION
  Report Type: Report from Study
  Country: DE (occurrence: DE)
  Receive Date: 20180629
  Receipt Date: 20180726
  Transmission Date: 20181010
  Serious: Yes (Death, Life-Threatening, Hospitalization)
  Sender: FDA-Public Use
  Company Number: DE-ROCHE-2107568

PATIENT
  Age: 83 Year
  Sex: Male
  Weight: 93 kg

DRUGS (32)
  1. FALITHROM [Concomitant]
     Active Substance: PHENPROCOUMON
     Route: 048
     Dates: start: 2011
  2. OBINUTUZUMAB. [Suspect]
     Active Substance: OBINUTUZUMAB
     Dosage: C1D2, STARTED AT 09:05 AND ENDED AT 11:55
     Route: 042
     Dates: start: 20140115, end: 20140115
  3. PREDNISOLON [Concomitant]
     Active Substance: PREDNISOLONE
     Route: 048
     Dates: start: 20161201
  4. BENDAMUSTINE [Suspect]
     Active Substance: BENDAMUSTINE
     Dosage: C1D3, STARTED AT 10:00 AND ENDED AT 11:00?C2D1, ON 11/FEB/2014 DOSE WAS TEMPORARILY INTERRUPTED?C3D1
     Route: 042
     Dates: start: 20140116, end: 20140116
  5. RANITIDIN [Concomitant]
     Active Substance: RANITIDINE HYDROCHLORIDE
     Indication: PREMEDICATION
     Route: 042
     Dates: start: 20140114, end: 20140603
  6. IBUROFEN [Concomitant]
     Active Substance: IBUPROFEN
     Route: 048
     Dates: start: 20161201
  7. OBINUTUZUMAB. [Suspect]
     Active Substance: OBINUTUZUMAB
     Dosage: C5D1, STARTED AT 08:45 AND ENDED AT 12:20
     Route: 042
     Dates: start: 20140506, end: 20140506
  8. PREDNISOLONE. [Concomitant]
     Active Substance: PREDNISOLONE
     Indication: PREMEDICATION
     Route: 042
     Dates: start: 20140114, end: 20140603
  9. PANTOPRAZOL [Concomitant]
     Active Substance: PANTOPRAZOLE SODIUM
     Route: 048
     Dates: start: 20161201
  10. SPIRONOLACTON [Concomitant]
     Active Substance: SPIRONOLACTONE
     Route: 048
     Dates: start: 20161201
  11. OBINUTUZUMAB. [Suspect]
     Active Substance: OBINUTUZUMAB
     Dosage: C2D1, STARTED AT 09:00 AND ENDED AT 12:15
     Route: 042
     Dates: start: 20140211, end: 20140211
  12. LERCANIDIPINE [Concomitant]
     Active Substance: LERCANIDIPINE
     Route: 048
     Dates: start: 20131217
  13. ONDANSETRON [Concomitant]
     Active Substance: ONDANSETRON
     Indication: PREMEDICATION
     Route: 042
     Dates: start: 20140114, end: 20140603
  14. PANTOPRAZOL [Concomitant]
     Active Substance: PANTOPRAZOLE SODIUM
     Dosage: SINGLE DOSE
     Route: 048
     Dates: start: 20140121, end: 20140121
  15. OBINUTUZUMAB. [Suspect]
     Active Substance: OBINUTUZUMAB
     Indication: CHRONIC LYMPHOCYTIC LEUKAEMIA
     Dosage: C1D1, STARTED AT 10:20 AND ENDED AT 16:40?C1D8? THERAPY WAS TEMPORARILY INTERRUPTED
     Route: 042
     Dates: start: 20140114, end: 20140114
  16. OBINUTUZUMAB. [Suspect]
     Active Substance: OBINUTUZUMAB
     Dosage: C3D1, STARTED AT 09:30 AND ENDED AT 13:00
     Route: 042
     Dates: start: 20140311, end: 20140311
  17. OBINUTUZUMAB. [Suspect]
     Active Substance: OBINUTUZUMAB
     Dosage: C6D1, STARTED AT 09:00 AND ENDED AT 13:00 (MOST RECENT DOSE PRIOR TO SAE ONSET)
     Route: 042
     Dates: start: 20140603, end: 20140603
  18. CANDESARTAN. [Concomitant]
     Active Substance: CANDESARTAN
     Route: 048
     Dates: start: 20131217
  19. TAMSUNAR [Concomitant]
     Route: 048
     Dates: start: 20131217
  20. PARACETAMOL [Concomitant]
     Active Substance: ACETAMINOPHEN
     Indication: PREMEDICATION
     Route: 048
     Dates: start: 20140114, end: 20140603
  21. TORASEMID [Concomitant]
     Active Substance: TORSEMIDE
     Route: 048
     Dates: start: 20161201
  22. OBINUTUZUMAB. [Suspect]
     Active Substance: OBINUTUZUMAB
     Dosage: C4D1, STARTED AT 09:00 AND ENDED AT 12:30
     Route: 042
     Dates: start: 20140408, end: 20140408
  23. OBINUTUZUMAB. [Suspect]
     Active Substance: OBINUTUZUMAB
     Dosage: C1D15, TEMPORARILY INTERRUPTED
     Route: 042
     Dates: start: 20140125, end: 20140125
  24. BENDAMUSTINE [Suspect]
     Active Substance: BENDAMUSTINE
     Indication: CHRONIC LYMPHOCYTIC LEUKAEMIA
     Dosage: C1D2
     Route: 042
     Dates: start: 20140115, end: 20140115
  25. GINGIO [Concomitant]
     Route: 048
     Dates: start: 20131217
  26. RANITIDIN [Concomitant]
     Active Substance: RANITIDINE HYDROCHLORIDE
     Dosage: SINGLE DOSE
     Route: 048
     Dates: start: 20140121, end: 20140121
  27. COTRIM FORTE [Concomitant]
     Active Substance: SULFAMETHOXAZOLE\TRIMETHOPRIM
     Indication: PREMEDICATION
     Route: 048
     Dates: start: 20140114
  28. FOLSAN [Concomitant]
     Active Substance: FOLIC ACID
     Route: 048
     Dates: start: 20161201
  29. BISOPROLOL [Concomitant]
     Active Substance: BISOPROLOL
     Route: 048
     Dates: start: 20131217
  30. FENISTIL (GERMANY) [Concomitant]
     Indication: PREMEDICATION
     Route: 042
     Dates: start: 20140114, end: 20140603
  31. FASTURTEC [Concomitant]
     Active Substance: RASBURICASE
     Indication: PREMEDICATION
     Route: 042
     Dates: start: 20140114, end: 20140117
  32. FRAXIPARIN [Concomitant]
     Active Substance: NADROPARIN CALCIUM
     Route: 058
     Dates: start: 20170609, end: 20170612

REACTIONS (2)
  - Pneumonia aspiration [Fatal]
  - Renal failure [Not Recovered/Not Resolved]

NARRATIVE: CASE EVENT DATE: 20180314
